FAERS Safety Report 5962577-4 (Version None)
Quarter: 2008Q4

REPORT INFORMATION
  Report Type: 
  Country: None (occurrence: None)
  Receive Date: 20081121
  Receipt Date: 20081111
  Transmission Date: 20090506
  Serious: Yes (Other)
  Sender: FDA-Public Use
  Company Number: BR-PFIZER INC-2008096058

PATIENT
  Sex: Female
  Weight: 62 kg

DRUGS (5)
  1. FRONTAL [Suspect]
     Indication: INSOMNIA
     Route: 048
     Dates: end: 20081110
  2. ATENSINA [Concomitant]
     Route: 065
  3. BISOPROLOL FUMARATE [Concomitant]
     Route: 065
  4. SOMALGIN [Concomitant]
     Route: 065
  5. VALSARTAN [Concomitant]
     Route: 065

REACTIONS (2)
  - ABASIA [None]
  - DIZZINESS [None]
